FAERS Safety Report 22031570 (Version 1)
Quarter: 2023Q1

REPORT INFORMATION
  Report Type: Spontaneous
  Country: US (occurrence: US)
  Receive Date: 20230224
  Receipt Date: 20230224
  Transmission Date: 20230417
  Serious: Yes (Death, Other)
  Sender: FDA-Public Use
  Company Number: US-TOLMAR, INC.-23US039050

PATIENT
  Age: 4 Decade
  Sex: Male

DRUGS (12)
  1. ELIGARD [Suspect]
     Active Substance: LEUPROLIDE ACETATE
     Indication: Hormone-dependent prostate cancer
     Dosage: 45 MILLIGRAM, Q 6 MONTH
     Route: 030
  2. PEMBROLIZUMAB [Suspect]
     Active Substance: PEMBROLIZUMAB
     Indication: Hormone-dependent prostate cancer
     Dosage: UNK
  3. BICALUTAMIDE [Concomitant]
     Active Substance: BICALUTAMIDE
     Indication: Hormone-dependent prostate cancer
  4. SIPULEUCEL-T [Concomitant]
     Active Substance: SIPULEUCEL-T
     Indication: Hormone-dependent prostate cancer
  5. ABIRATERONE;PREDNISONE [Concomitant]
     Indication: Hormone-dependent prostate cancer
  6. LIRAMETOSTAT [Concomitant]
     Active Substance: LIRAMETOSTAT
     Indication: Hormone-dependent prostate cancer
  7. ENZALUTAMIDE [Concomitant]
     Active Substance: ENZALUTAMIDE
     Indication: Hormone-dependent prostate cancer
     Dosage: UNK
  8. DOCETAXEL [Concomitant]
     Active Substance: DOCETAXEL
     Indication: Hormone-dependent prostate cancer
  9. OLAPARIB [Concomitant]
     Active Substance: OLAPARIB
     Indication: Hormone-dependent prostate cancer
  10. CABAZITAXEL [Concomitant]
     Active Substance: CABAZITAXEL
     Indication: Hormone-dependent prostate cancer
  11. CARBOPLATIN [Concomitant]
     Active Substance: CARBOPLATIN
     Indication: Hormone-dependent prostate cancer
  12. TESTOSTERONE CYPIONATE [Concomitant]
     Active Substance: TESTOSTERONE CYPIONATE
     Indication: Hormone-dependent prostate cancer
     Dosage: 400 MILLIGRAM, EVERY 28 DAYS
     Route: 030

REACTIONS (7)
  - Hydronephrosis [Unknown]
  - Pneumonitis [Recovered/Resolved]
  - Malignant neoplasm progression [Fatal]
  - Lymphadenopathy [Unknown]
  - Adrenal mass [Unknown]
  - Hepatic mass [Unknown]
  - Incorrect route of product administration [Unknown]
